FAERS Safety Report 19876667 (Version 1)
Quarter: 2021Q3

REPORT INFORMATION
  Report Type: Spontaneous
  Country: US (occurrence: US)
  Receive Date: 20210924
  Receipt Date: 20210924
  Transmission Date: 20211014
  Serious: Yes (Hospitalization)
  Sender: FDA-Public Use
  Company Number: US-GLOBAL BLOOD THERAPEUTICS INC-US-GBT-21-03239

PATIENT
  Sex: Male

DRUGS (1)
  1. OXBRYTA [Suspect]
     Active Substance: VOXELOTOR
     Indication: SICKLE CELL DISEASE
     Route: 048
     Dates: end: 202108

REACTIONS (4)
  - Therapy non-responder [Unknown]
  - Stem cell transplant [Not Recovered/Not Resolved]
  - Pain [Unknown]
  - Therapy cessation [Unknown]

NARRATIVE: CASE EVENT DATE: 2021
